FAERS Safety Report 8848192 (Version 2)
Quarter: 2012Q4

REPORT INFORMATION
  Report Type: 
  Country: US (occurrence: US)
  Receive Date: 20121018
  Receipt Date: 20121112
  Transmission Date: 20130627
  Serious: Yes (Other)
  Sender: FDA-Public Use
  Company Number: US-PFIZER INC-2012258176

PATIENT
  Age: 89 Year
  Sex: Female
  Weight: 63.49 kg

DRUGS (5)
  1. LIPITOR [Suspect]
     Indication: HEART ATTACK
     Dosage: 20 mg, daily
     Dates: start: 200502
  2. LIPITOR [Suspect]
     Indication: PACEMAKER INSERTION (CARDIAC)
  3. LIPITOR [Suspect]
     Indication: STENT PLACEMENT
  4. SOTALOL [Concomitant]
     Dosage: 80 mg, 2x/day
  5. LASIX [Concomitant]
     Indication: JOINT DISORDER
     Dosage: 20 mg, 3x/week

REACTIONS (2)
  - Cerebrovascular accident [Unknown]
  - Asthenia [Not Recovered/Not Resolved]
